FAERS Safety Report 7037136-5 (Version None)
Quarter: 2010Q4

REPORT INFORMATION
  Report Type: 
  Country: None (occurrence: None)
  Receive Date: 20101011
  Receipt Date: 20100927
  Transmission Date: 20110411
  Serious: Yes (Hospitalization)
  Sender: FDA-Public Use
  Company Number: US-ELI_LILLY_AND_COMPANY-US201007001247

PATIENT
  Sex: Female

DRUGS (8)
  1. FORTEO [Suspect]
     Indication: OSTEOPOROSIS
  2. BACLOFEN [Concomitant]
     Dosage: 10 MG, 3/D
  3. PAROXETINE HCL [Concomitant]
     Dosage: 10 MG, DAILY (1/D)
  4. LORAZEPAM [Concomitant]
     Dosage: 0.5 MG, 3/D
  5. TRAZODONE HCL [Concomitant]
     Dosage: 50 MG, EACH EVENING
  6. METOPROLOL SUCCINATE [Concomitant]
     Dosage: 25 MG, DAILY (1/D)
  7. PROPOXYPHENE HYDROCHLORIDE W/PARACETAMOL [Concomitant]
  8. VITAMINS [Concomitant]

REACTIONS (28)
  - ANXIETY [None]
  - ASTHENIA [None]
  - BACK PAIN [None]
  - BURNING SENSATION [None]
  - DECREASED APPETITE [None]
  - DEPRESSION [None]
  - DIVERTICULITIS [None]
  - DIZZINESS [None]
  - DYSPEPSIA [None]
  - DYSPNOEA [None]
  - DYSSTASIA [None]
  - FATIGUE [None]
  - FEAR [None]
  - FLATULENCE [None]
  - HEADACHE [None]
  - HOMICIDAL IDEATION [None]
  - ILL-DEFINED DISORDER [None]
  - MALAISE [None]
  - MUSCLE SPASMS [None]
  - MUSCULAR WEAKNESS [None]
  - NAUSEA [None]
  - NERVOUSNESS [None]
  - OEDEMA PERIPHERAL [None]
  - PAIN [None]
  - PAIN IN EXTREMITY [None]
  - STRESS [None]
  - TREMOR [None]
  - WEIGHT DECREASED [None]
